FAERS Safety Report 4715072-4 (Version None)
Quarter: 2005Q3

REPORT INFORMATION
  Report Type: 
  Country: None (occurrence: None)
  Receive Date: 20050715
  Receipt Date: 20050704
  Transmission Date: 20060218
  Serious: Yes (Other)
  Sender: FDA-Public Use
  Company Number: CR-BRISTOL-MYERS SQUIBB COMPANY-13024286

PATIENT
  Age: 58 Year
  Sex: Female

DRUGS (3)
  1. VIDEX [Suspect]
     Indication: HIV INFECTION
     Route: 048
     Dates: start: 20030101, end: 20041001
  2. EFAVIRENZ [Suspect]
     Indication: HIV INFECTION
     Dates: start: 20030101
  3. LAMIVUDINE [Suspect]
     Indication: HIV INFECTION
     Dates: start: 20030101

REACTIONS (1)
  - HEPATIC CIRRHOSIS [None]
